FAERS Safety Report 11258857 (Version 2)
Quarter: 2015Q3

REPORT INFORMATION
  Report Type: Spontaneous
  Country: US (occurrence: US)
  Receive Date: 20150710
  Receipt Date: 20150826
  Transmission Date: 20151125
  Serious: No
  Sender: FDA-Public Use
  Company Number: US-PFIZER INC-2015225707

PATIENT
  Sex: Female

DRUGS (1)
  1. LYRICA [Suspect]
     Active Substance: PREGABALIN
     Indication: FIBROMYALGIA
     Dosage: 50 MG, UNK
     Route: 048
     Dates: start: 201506

REACTIONS (3)
  - Energy increased [Unknown]
  - Therapeutic response unexpected [Unknown]
  - Drug effect decreased [Not Recovered/Not Resolved]
